FAERS Safety Report 19069384 (Version 3)
Quarter: 2021Q3

REPORT INFORMATION
  Report Type: Spontaneous
  Country: JP (occurrence: JP)
  Receive Date: 20210329
  Receipt Date: 20210916
  Transmission Date: 20211014
  Serious: Yes (Death)
  Sender: FDA-Public Use
  Company Number: JP-EISAI MEDICAL RESEARCH-EC-2021-090301

PATIENT
  Age: 62 Year
  Sex: Female
  Weight: 60 kg

DRUGS (1)
  1. LENVATINIB [Suspect]
     Active Substance: LENVATINIB
     Indication: ANAPLASTIC THYROID CANCER
     Route: 048
     Dates: start: 20170120, end: 20170615

REACTIONS (5)
  - Incision site erosion [Not Recovered/Not Resolved]
  - Post procedural haemorrhage [Fatal]
  - Impaired healing [Not Recovered/Not Resolved]
  - Incision site ulcer [Not Recovered/Not Resolved]
  - Vessel perforation [Fatal]

NARRATIVE: CASE EVENT DATE: 20170125
